FAERS Safety Report 13422011 (Version 3)
Quarter: 2017Q2

REPORT INFORMATION
  Report Type: Spontaneous
  Country: US (occurrence: US)
  Receive Date: 20170410
  Receipt Date: 20170507
  Transmission Date: 20170830
  Serious: Yes (Hospitalization)
  Sender: FDA-Public Use
  Company Number: US-BAXTER-2017BAX015397

PATIENT
  Age: 49 Year
  Sex: Female

DRUGS (1)
  1. DIANEAL LOW CALCIUM PERITONEAL DIALYSIS SOLUTION WITH DEXTROSE [Suspect]
     Active Substance: CALCIUM CHLORIDE\DEXTROSE\MAGNESIUM CHLORIDE\SODIUM CHLORIDE\SODIUM LACTATE
     Indication: PERITONEAL DIALYSIS
     Route: 033

REACTIONS (13)
  - Vascular calcification [Unknown]
  - Abasia [Unknown]
  - Gastrointestinal disorder [Unknown]
  - Bone disorder [Unknown]
  - Ovarian cyst [Unknown]
  - Fluid retention [Unknown]
  - Infection [Unknown]
  - Decreased activity [Unknown]
  - Blood potassium increased [Unknown]
  - Lung cyst [Unknown]
  - Rib fracture [Unknown]
  - Blood calcium increased [Unknown]
  - Arteriosclerosis [Unknown]

NARRATIVE: CASE EVENT DATE: 20170404
